FAERS Safety Report 19932943 (Version 1)
Quarter: 2021Q4

REPORT INFORMATION
  Report Type: Spontaneous
  Country: US (occurrence: US)
  Receive Date: 20211008
  Receipt Date: 20211008
  Transmission Date: 20220303
  Serious: Yes (Other)
  Sender: FDA-Public Use
  Company Number: US-NOVITIUMPHARMA-2021USNVP00093

PATIENT
  Age: 83 Year
  Sex: Male

DRUGS (1)
  1. PREDNISONE [Suspect]
     Active Substance: PREDNISONE
     Indication: Product used for unknown indication

REACTIONS (6)
  - Starvation [Unknown]
  - Toxicity to various agents [Unknown]
  - Dysphagia [Unknown]
  - Angina pectoris [Unknown]
  - Pain in extremity [Unknown]
  - Dyspnoea [Unknown]
